FAERS Safety Report 24942091 (Version 1)
Quarter: 2025Q1

REPORT INFORMATION
  Report Type: Spontaneous
  Country: US (occurrence: None)
  Receive Date: 20250206
  Receipt Date: 20250206
  Transmission Date: 20250409
  Serious: No
  Sender: FDA-CTU
  Company Number: None

PATIENT
  Age: 16 Year
  Sex: Female
  Weight: 97 kg

DRUGS (1)
  1. OCTAGAM IMMUNE GLOBULIN (HUMAN) [Suspect]
     Active Substance: HUMAN IMMUNOGLOBULIN G
     Indication: Acute lymphocytic leukaemia
     Route: 041
     Dates: start: 20250205, end: 20250205

REACTIONS (4)
  - Infusion related reaction [None]
  - Urticaria [None]
  - Feeling hot [None]
  - Product quality issue [None]

NARRATIVE: CASE EVENT DATE: 20250205
